FAERS Safety Report 4646433-X (Version None)
Quarter: 2005Q2

REPORT INFORMATION
  Report Type: 
  Country: None (occurrence: None)
  Receive Date: 20050426
  Receipt Date: 20050316
  Transmission Date: 20051028
  Serious: Yes (Other)
  Sender: FDA-Public Use
  Company Number: 2005S1001445

PATIENT
  Sex: Female
  Weight: 108.8633 kg

DRUGS (13)
  1. METFORMIN HCL [Suspect]
     Indication: DIABETES MELLITUS
     Dosage: SEE IMAGE
     Route: 048
     Dates: start: 20040215
  2. METFORMIN HCL [Suspect]
     Indication: DIABETES MELLITUS
     Dosage: SEE IMAGE
     Route: 048
     Dates: start: 20040215
  3. PIOGLITAZONE HCL [Concomitant]
  4. HYDROCHLORIDE [Concomitant]
  5. CALCIUM GLUCONATE [Concomitant]
  6. LEVOTHYROXINE SODIUM [Concomitant]
  7. LISINOPRIL [Concomitant]
  8. HYDROCHLOROTHIAZIDE [Concomitant]
  9. GLIBENCLAMIDE [Concomitant]
  10. ACETYL SALICYLIC ACID USP BAT [Concomitant]
  11. DOCUSATE SODIUM [Concomitant]
  12. FISH OIL [Concomitant]
  13. VITAMINS NOS [Concomitant]

REACTIONS (5)
  - ANAL DISCOMFORT [None]
  - ANAL FISSURE [None]
  - DIARRHOEA [None]
  - RECTAL HAEMORRHAGE [None]
  - STOMACH DISCOMFORT [None]
